FAERS Safety Report 16244573 (Version 1)
Quarter: 2019Q2

REPORT INFORMATION
  Report Type: Spontaneous
  Country: FR (occurrence: FR)
  Receive Date: 20190426
  Receipt Date: 20190426
  Transmission Date: 20190711
  Serious: Yes (Other)
  Sender: FDA-Public Use
  Company Number: FR-ROCHE-2307334

PATIENT
  Sex: Male

DRUGS (1)
  1. RIVOTRIL [Suspect]
     Active Substance: CLONAZEPAM
     Indication: PRODUCT USED FOR UNKNOWN INDICATION
     Route: 065

REACTIONS (6)
  - Hypotension [Unknown]
  - Somnolence [Unknown]
  - Drug abuse [Unknown]
  - Benzodiazepine drug level increased [Unknown]
  - Haemoptysis [Unknown]
  - Altered state of consciousness [Unknown]
